FAERS Safety Report 6124793-0 (Version None)
Quarter: 2009Q1

REPORT INFORMATION
  Report Type: 
  Country: None (occurrence: None)
  Receive Date: 20090319
  Receipt Date: 20090304
  Transmission Date: 20090719
  Serious: Yes (Hospitalization)
  Sender: FDA-Public Use
  Company Number: SE-JNJFOC-20090301010

PATIENT
  Sex: Female

DRUGS (10)
  1. DURAGESIC-100 [Suspect]
     Indication: BACK PAIN
     Route: 062
  2. FELODIPINE [Concomitant]
     Route: 048
  3. KALEORID [Concomitant]
     Route: 048
  4. TROMBYL [Concomitant]
     Route: 048
  5. TRIOBE [Concomitant]
     Route: 048
  6. ATACAND [Concomitant]
     Route: 048
  7. FURIX [Concomitant]
     Route: 048
  8. SOTALOL HYDROCHLORIDE [Concomitant]
     Route: 048
  9. LEVOTHYROXINE SODIUM [Concomitant]
     Route: 048
  10. ENALAPRIL [Concomitant]
     Route: 048

REACTIONS (5)
  - DIZZINESS [None]
  - HYPOTENSION [None]
  - INCORRECT DOSE ADMINISTERED [None]
  - RESPIRATORY DEPRESSION [None]
  - STUPOR [None]
